FAERS Safety Report 5884115-7 (Version None)
Quarter: 2008Q3

REPORT INFORMATION
  Report Type: 
  Country: None (occurrence: None)
  Receive Date: 20080911
  Receipt Date: 20080829
  Transmission Date: 20090109
  Serious: Yes (Hospitalization)
  Sender: FDA-Public Use
  Company Number: 2008AL009404

PATIENT
  Age: 68 Year
  Sex: Male

DRUGS (6)
  1. DIGOXIN [Suspect]
     Indication: ATRIAL FIBRILLATION
     Dosage: 0.25MG DAILY PO
     Route: 048
     Dates: start: 19890101, end: 20080101
  2. ZOCOR [Concomitant]
  3. COUMADIN [Concomitant]
  4. COREG [Concomitant]
  5. ACCUPRIL [Concomitant]
  6. PERCOCET [Concomitant]

REACTIONS (24)
  - ASTHENIA [None]
  - ATRIAL FIBRILLATION [None]
  - BRADYCARDIA [None]
  - CHILLS [None]
  - CORONARY ARTERY DISEASE [None]
  - COUGH [None]
  - DEVICE RELATED INFECTION [None]
  - DYSPNOEA PAROXYSMAL NOCTURNAL [None]
  - ERYTHEMA [None]
  - FATIGUE [None]
  - HAEMATURIA [None]
  - IMPLANT SITE HAEMATOMA [None]
  - IMPLANT SITE HAEMORRHAGE [None]
  - IMPLANT SITE INFECTION [None]
  - LEFT VENTRICULAR DYSFUNCTION [None]
  - LUNG INFILTRATION [None]
  - NODAL RHYTHM [None]
  - OPEN WOUND [None]
  - ORTHOPNOEA [None]
  - PAIN IN EXTREMITY [None]
  - POST PROCEDURAL HAEMORRHAGE [None]
  - PROCEDURAL PAIN [None]
  - PULMONARY HYPERTENSION [None]
  - STAPHYLOCOCCAL INFECTION [None]
